FAERS Safety Report 15976534 (Version 2)
Quarter: 2019Q1

REPORT INFORMATION
  Report Type: Spontaneous
  Country: DE (occurrence: DE)
  Receive Date: 20190218
  Receipt Date: 20190304
  Transmission Date: 20190418
  Serious: Yes (Death, Hospitalization, Other)
  Sender: FDA-Public Use
  Company Number: DE-SA-2019SA044808

PATIENT
  Age: 38 Year
  Sex: Female

DRUGS (4)
  1. TECFIDERA [Concomitant]
     Active Substance: DIMETHYL FUMARATE
     Indication: MULTIPLE SCLEROSIS
  2. ALEMTUZUMAB [Suspect]
     Active Substance: ALEMTUZUMAB
     Indication: RELAPSING-REMITTING MULTIPLE SCLEROSIS
     Dosage: 12 MG, QD
     Route: 041
  3. FAMPYRA [Concomitant]
     Active Substance: DALFAMPRIDINE
     Indication: MULTIPLE SCLEROSIS
  4. CORTISONE [Concomitant]
     Active Substance: CORTISONE\HYDROCORTISONE
     Indication: MULTIPLE SCLEROSIS

REACTIONS (8)
  - Paraesthesia [Fatal]
  - Headache [Fatal]
  - Bradycardia [Fatal]
  - Vomiting [Fatal]
  - Loss of consciousness [Fatal]
  - Cerebral haemorrhage [Fatal]
  - Fatigue [Fatal]
  - Seizure [Fatal]
